FAERS Safety Report 8852567 (Version 1)
Quarter: 2012Q4

REPORT INFORMATION
  Report Type: 
  Country: US (occurrence: US)
  Receive Date: 20121022
  Receipt Date: 20121022
  Transmission Date: 20130627
  Serious: Yes (Hospitalization, Other)
  Sender: FDA-Public Use
  Company Number: PHEH2012US019187

PATIENT
  Age: 46 Year
  Sex: Female

DRUGS (5)
  1. GILENYA [Suspect]
     Indication: MULTIPLE SCLEROSIS
     Dosage: 1 DF, QD
     Route: 048
     Dates: start: 201101
  2. LISINOPRIL [Concomitant]
  3. BABY ASPIRIN [Concomitant]
  4. CALCIUM [Concomitant]
  5. MULTIVITAMINS [Concomitant]

REACTIONS (10)
  - Blood pressure increased [Unknown]
  - Palpitations [Unknown]
  - Urinary tract infection [Recovering/Resolving]
  - Micturition urgency [Recovering/Resolving]
  - Weight decreased [Recovering/Resolving]
  - Tremor [Recovering/Resolving]
  - Wound [Recovering/Resolving]
  - Gait disturbance [Recovering/Resolving]
  - Fall [Recovering/Resolving]
  - Dyspnoea [Recovering/Resolving]
